FAERS Safety Report 14544046 (Version 1)
Quarter: 2018Q1

REPORT INFORMATION
  Report Type: Spontaneous
  Country: US (occurrence: US)
  Receive Date: 20180216
  Receipt Date: 20180216
  Transmission Date: 20180509
  Serious: No
  Sender: FDA-Public Use
  Company Number: US-TEIKOKU PHARMA USA-TPU2018-00030

PATIENT
  Sex: Male
  Weight: 70.37 kg

DRUGS (1)
  1. LIDODERM [Suspect]
     Active Substance: LIDOCAINE
     Indication: INTERVERTEBRAL DISC DEGENERATION
     Dates: start: 20180112

REACTIONS (2)
  - Hypoaesthesia [Not Recovered/Not Resolved]
  - Incorrect drug administration duration [Unknown]
